FAERS Safety Report 8790362 (Version 1)
Quarter: 2012Q4

REPORT INFORMATION
  Report Type: 
  Country: US (occurrence: US)
  Receive Date: 20120917
  Receipt Date: 20120917
  Transmission Date: 20130627
  Serious: No
  Sender: FDA-Public Use
  Company Number: US-TEVA-358884USA

PATIENT
  Sex: Female

DRUGS (4)
  1. NUVIGIL [Suspect]
     Indication: FATIGUE
     Route: 048
     Dates: start: 201203, end: 201203
  2. NUVIGIL [Suspect]
     Indication: FIBROMYALGIA
  3. REMERON [Concomitant]
  4. BUPRENORPHINE [Concomitant]

REACTIONS (2)
  - Drug ineffective [Recovered/Resolved]
  - Off label use [Recovered/Resolved]
